FAERS Safety Report 13763859 (Version 1)
Quarter: 2017Q3

REPORT INFORMATION
  Report Type: Spontaneous
  Country: DE (occurrence: DE)
  Receive Date: 20170718
  Receipt Date: 20170718
  Transmission Date: 20171127
  Serious: Yes (Other)
  Sender: FDA-Public Use
  Company Number: DE-AKORN PHARMACEUTICALS-2017AKN00876

PATIENT
  Age: 4 Year
  Sex: Female

DRUGS (1)
  1. ISOTRETINOIN [Suspect]
     Active Substance: ISOTRETINOIN
     Indication: NEUROBLASTOMA RECURRENT
     Dosage: 160 MG/M^2/D IN 2-(3) DIVIDED DOSES
     Route: 048

REACTIONS (2)
  - Epiphyses premature fusion [Recovering/Resolving]
  - Dwarfism [Recovering/Resolving]
